FAERS Safety Report 24603610 (Version 1)
Quarter: 2024Q4

REPORT INFORMATION
  Report Type: Report from Study
  Country: CA (occurrence: CA)
  Receive Date: 20241111
  Receipt Date: 20241111
  Transmission Date: 20250115
  Serious: Yes (Other)
  Sender: GILEAD
  Company Number: CA-GILEAD-2024-0693366

PATIENT
  Sex: Female

DRUGS (1)
  1. AZTREONAM LYSINE [Suspect]
     Active Substance: AZTREONAM LYSINE
     Indication: Cystic fibrosis
     Dosage: 1 VIAL 3 TIMES A DAY
     Route: 055
     Dates: start: 20221210

REACTIONS (3)
  - Pneumonia [Unknown]
  - Dysphonia [Unknown]
  - Haemoptysis [Unknown]
